FAERS Safety Report 10034601 (Version 1)
Quarter: 2014Q1

REPORT INFORMATION
  Report Type: Spontaneous
  Country: US (occurrence: None)
  Receive Date: 20140324
  Receipt Date: 20140324
  Transmission Date: 20141002
  Serious: Yes (Other)
  Sender: FDA-Public Use
  Company Number: None

PATIENT
  Age: 70 Year
  Sex: Female

DRUGS (5)
  1. LIDOCAINE [Suspect]
     Dosage: APPLY 1 PATCH TO SINTACT SKIN A, QD, TRANSDERMAL
     Route: 062
     Dates: start: 20131002, end: 20140320
  2. LUNESTA [Concomitant]
  3. CRESTOR [Concomitant]
  4. SYNTHROID [Concomitant]
  5. ESTRACE VAGINAL CREAM [Concomitant]
     Dosage: APPLY 1 PATCH TO INTACT SKIN A  QD
     Route: 062

REACTIONS (6)
  - Poor quality drug administered [None]
  - Product adhesion issue [None]
  - Therapeutic product ineffective [None]
  - Product substitution issue [None]
  - Product quality issue [None]
  - Product size issue [None]
